FAERS Safety Report 8115679-0 (Version None)
Quarter: 2012Q1

REPORT INFORMATION
  Report Type: 
  Country: None (occurrence: None)
  Receive Date: 20120206
  Receipt Date: 20120127
  Transmission Date: 20120608
  Serious: Yes (Other)
  Sender: FDA-Public Use
  Company Number: US-SANOFI-AVENTIS-2012SA006657

PATIENT

DRUGS (4)
  1. DOCETAXEL [Suspect]
     Dosage: FROM WEEK 10 ONWARDS
     Route: 042
  2. THERAPEUTIC RADIOPHARMACEUTICALS [Suspect]
     Dosage: DAILY DOSE: 2 GY, WAS GIVEN FORM 10 TH WEEK OF TREATMENT
     Route: 065
  3. DOCETAXEL [Suspect]
     Dosage: RECEIVED OVER 1 HOUR, TOTAL OF 3 CYCLES
     Route: 042
  4. CISPLATIN [Concomitant]
     Dosage: OVER 2H FOR 3 CYCLES

REACTIONS (1)
  - PERICARDITIS [None]
